FAERS Safety Report 13496116 (Version 1)
Quarter: 2017Q2

REPORT INFORMATION
  Report Type: Report from Study
  Country: BR (occurrence: BR)
  Receive Date: 20170428
  Receipt Date: 20170428
  Transmission Date: 20170830
  Serious: Yes (Hospitalization)
  Sender: FDA-Public Use
  Company Number: PHHY2017BR062035

PATIENT
  Age: 83 Year
  Sex: Female
  Weight: 84 kg

DRUGS (4)
  1. DIOVAN HCT [Suspect]
     Active Substance: HYDROCHLOROTHIAZIDE\VALSARTAN
     Indication: HYPERTENSION
     Dosage: 1 DF, QD (HYDROCHLOROTHIAZIDE12.5MG/VALSARTAN 80 MG)
     Route: 048
  2. DIOVAN [Suspect]
     Active Substance: VALSARTAN
     Indication: HYPERTENSION
     Dosage: 160 MG, QD
     Route: 048
  3. DECADRON [Suspect]
     Active Substance: DEXAMETHASONE
     Indication: MIGRAINE
     Dosage: 1 G, QD
     Route: 065
  4. DECADRON [Suspect]
     Active Substance: DEXAMETHASONE
     Indication: PAIN

REACTIONS (7)
  - Weight increased [Unknown]
  - Visual impairment [Unknown]
  - Decreased immune responsiveness [Unknown]
  - Migraine [Unknown]
  - Weight decreased [Unknown]
  - Herpes zoster [Recovered/Resolved]
  - Depression [Recovered/Resolved]
